FAERS Safety Report 9323032 (Version 2)
Quarter: 2013Q2

REPORT INFORMATION
  Report Type: Spontaneous
  Country: US (occurrence: US)
  Receive Date: 20130603
  Receipt Date: 20130628
  Transmission Date: 20140414
  Serious: No
  Sender: FDA-Public Use
  Company Number: US-009507513-1305USA011992

PATIENT
  Age: 26 Year
  Sex: Male
  Weight: 126.53 kg

DRUGS (4)
  1. SAPHRIS [Suspect]
     Indication: BIPOLAR DISORDER
     Dosage: UNK
     Route: 060
     Dates: start: 20130402, end: 20130430
  2. SAPHRIS [Suspect]
     Indication: PSYCHOTIC DISORDER
  3. LITHIUM [Concomitant]
     Indication: AFFECTIVE DISORDER
     Dosage: UNK
  4. DIAZEPAN [Concomitant]
     Indication: ANXIETY
     Dosage: UNK

REACTIONS (5)
  - Oral discomfort [Recovered/Resolved]
  - Extrapyramidal disorder [Recovered/Resolved]
  - Restlessness [Recovered/Resolved]
  - Akathisia [Recovered/Resolved]
  - Muscle spasms [Recovered/Resolved]
